FAERS Safety Report 7474934-8 (Version None)
Quarter: 2011Q2

REPORT INFORMATION
  Report Type: 
  Country: None (occurrence: None)
  Receive Date: 20110512
  Receipt Date: 20090930
  Transmission Date: 20111010
  Serious: Yes (Hospitalization, Other)
  Sender: FDA-Public Use
  Company Number: US-BAYER-200934796NA

PATIENT
  Age: 49 Year
  Sex: Female
  Weight: 99.773 kg

DRUGS (13)
  1. APRESOLINE [Concomitant]
     Dosage: 25 MG, BID
     Route: 048
  2. GLUCOPHAGE [Concomitant]
     Route: 048
  3. HEPARIN [Concomitant]
     Dosage: 62000/600
     Route: 042
     Dates: start: 20051215
  4. TRASYLOL [Suspect]
     Indication: CORONARY ARTERY BYPASS
     Dosage: INTIAL TEST DOSE 1ML
     Route: 042
     Dates: start: 20051216
  5. LOPRESSOR [Concomitant]
     Dosage: 25 MG, BID
     Route: 048
  6. ACCUPRIL [Concomitant]
     Route: 048
  7. NITROGLYCERIN [Concomitant]
     Dosage: UNK
     Route: 042
  8. DYAZIDE [Concomitant]
     Route: 048
  9. ZOCOR [Concomitant]
     Route: 048
  10. RED BLOOD CELLS [Concomitant]
     Indication: ANAEMIA
     Dosage: 1 U, UNK
     Dates: start: 20051217
  11. TRASYLOL [Suspect]
     Dosage: LOADING DOSE 200ML FOLLOWED BY 50ML/HOUR
     Route: 042
     Dates: end: 20051216
  12. PROTAMINE SULFATE [Concomitant]
     Dosage: 100/480 ML
     Route: 042
     Dates: start: 20051216
  13. EPHEDRINE SUL CAP [Concomitant]
     Dosage: UNK
     Route: 042
     Dates: start: 20051216

REACTIONS (12)
  - MULTI-ORGAN FAILURE [None]
  - CEREBROVASCULAR ACCIDENT [None]
  - RENAL FAILURE [None]
  - EMOTIONAL DISTRESS [None]
  - ANXIETY [None]
  - FEAR OF DEATH [None]
  - RENAL INJURY [None]
  - NERVOUSNESS [None]
  - INJURY [None]
  - FEAR [None]
  - DEPRESSION [None]
  - PAIN [None]
